FAERS Safety Report 21614526 (Version 1)
Quarter: 2022Q4

REPORT INFORMATION
  Report Type: Spontaneous
  Country: US (occurrence: US)
  Receive Date: 20221118
  Receipt Date: 20221118
  Transmission Date: 20230112
  Serious: Yes (Other)
  Sender: FDA-Public Use
  Company Number: US-SUN PHARMACEUTICAL INDUSTRIES LTD-2022R1-364360

PATIENT
  Age: 27 Year
  Sex: Female

DRUGS (3)
  1. BUPRENORPHINE\NALOXONE [Suspect]
     Active Substance: BUPRENORPHINE\NALOXONE
     Indication: Drug use disorder
     Dosage: 6-1.5 MG EVERY MORNING AND 8-2 MG QHS
     Route: 065
  2. BUPRENORPHINE [Suspect]
     Active Substance: BUPRENORPHINE
     Indication: Drug use disorder
     Dosage: 4 MILLIGRAM, BID
     Route: 065
  3. HERBALS\MITRAGYNINE [Suspect]
     Active Substance: HERBALS\MITRAGYNINE
     Indication: Drug use disorder
     Dosage: 30 GRAM, DAILY
     Route: 065

REACTIONS (3)
  - Exposure during pregnancy [Unknown]
  - Drug ineffective [Unknown]
  - Drug withdrawal syndrome [Unknown]
